FAERS Safety Report 8570235-5 (Version None)
Quarter: 2012Q3

REPORT INFORMATION
  Report Type: 
  Country: None (occurrence: None)
  Receive Date: 20120803
  Receipt Date: 20120729
  Transmission Date: 20120928
  Serious: Yes (Hospitalization)
  Sender: FDA-Public Use
  Company Number: NL-PFIZER INC-2012146109

PATIENT
  Age: 74 Year
  Sex: Male

DRUGS (6)
  1. ATORVASTATIN CALCIUM [Suspect]
     Indication: HYPERCHOLESTEROLAEMIA
     Dosage: 20 MG, UNK
     Route: 048
  2. METOPROLOL [Concomitant]
     Indication: HYPERTENSION
     Dosage: 25 MG, UNK
     Route: 048
  3. TAMSUSOLINE [Concomitant]
     Indication: PROSTATIC DISORDER
  4. PERINDOPRIL [Concomitant]
     Dosage: 8 MG, UNK
  5. GLUCOSAMINE [Concomitant]
     Dosage: ^100^, UNK
  6. CARBASALATE [Concomitant]
     Dosage: 100 MG, UNK

REACTIONS (6)
  - MUSCULOSKELETAL STIFFNESS [None]
  - GAIT DISTURBANCE [None]
  - PAIN [None]
  - ARTHRALGIA [None]
  - PARAESTHESIA [None]
  - MYALGIA [None]
